FAERS Safety Report 9384399 (Version 1)
Quarter: 2013Q3

REPORT INFORMATION
  Report Type: Report from Study
  Country: BR (occurrence: BR)
  Receive Date: 20130705
  Receipt Date: 20130705
  Transmission Date: 20140515
  Serious: Yes (Other)
  Sender: FDA-Public Use
  Company Number: PHHY2013BR070511

PATIENT
  Sex: Female
  Weight: 70 kg

DRUGS (3)
  1. ACLASTA [Suspect]
     Indication: OSTEOPOROSIS
     Dosage: 5 MG, EVERY YEAR
     Route: 042
     Dates: start: 201205
  2. ATENOLOL [Concomitant]
     Indication: HYPERTENSION
     Dosage: 2 DF, DAILY
     Route: 048
  3. VALSARTAN/HYDROCHLOROTHIAZIDE [Concomitant]
     Indication: HYPERTENSION
     Dosage: 2 DF, DAILY
     Route: 048

REACTIONS (1)
  - Cholelithiasis [Not Recovered/Not Resolved]
